FAERS Safety Report 9706038 (Version 1)
Quarter: 2013Q4

REPORT INFORMATION
  Report Type: Spontaneous
  Country: DE (occurrence: DE)
  Receive Date: 20131122
  Receipt Date: 20131122
  Transmission Date: 20140711
  Serious: Yes (Other)
  Sender: FDA-Public Use
  Company Number: DE-JNJFOC-20131109879

PATIENT
  Age: 32 Year
  Sex: Female
  Weight: 85 kg

DRUGS (17)
  1. REMICADE [Suspect]
     Indication: PSORIATIC ARTHROPATHY
     Dosage: 400/ 300-400 MG
     Route: 042
     Dates: start: 20090624
  2. REMICADE [Suspect]
     Indication: PSORIATIC ARTHROPATHY
     Route: 042
     Dates: start: 20090717
  3. REMICADE [Suspect]
     Indication: PSORIATIC ARTHROPATHY
     Route: 042
     Dates: start: 20100209, end: 20100209
  4. REMICADE [Suspect]
     Indication: PSORIATIC ARTHROPATHY
     Route: 042
     Dates: start: 20091221
  5. REMICADE [Suspect]
     Indication: PSORIATIC ARTHROPATHY
     Route: 042
     Dates: start: 20100107
  6. PARACETAMOL [Suspect]
     Route: 048
  7. PARACETAMOL [Suspect]
     Indication: PSORIATIC ARTHROPATHY
     Route: 048
  8. JURNISTA [Suspect]
     Indication: PSORIATIC ARTHROPATHY
     Route: 048
     Dates: start: 20091126, end: 20100115
  9. DIPIDOLOR [Suspect]
     Indication: PSORIATIC ARTHROPATHY
     Route: 048
  10. DICLOFENAC [Suspect]
     Indication: PSORIATIC ARTHROPATHY
     Route: 048
     Dates: start: 20091126, end: 201001
  11. DICLOFENAC [Suspect]
     Indication: PSORIATIC ARTHROPATHY
     Route: 048
     Dates: start: 20091126, end: 201001
  12. PREDNISOLONE [Suspect]
     Indication: PSORIATIC ARTHROPATHY
     Route: 048
     Dates: start: 20091126, end: 20100115
  13. PANTOPRAZOLE [Suspect]
     Indication: GASTRITIS PROPHYLAXIS
     Route: 048
     Dates: start: 20091126, end: 20100322
  14. HYDROCORTISONE [Suspect]
     Indication: PSORIASIS
     Dosage: 0.25 %
     Route: 003
     Dates: start: 20091119, end: 20091123
  15. BIFITERAL [Suspect]
     Indication: CONSTIPATION
     Route: 048
     Dates: start: 20091123, end: 20091130
  16. DOLORMIN [Suspect]
     Indication: MIGRAINE
     Route: 048
     Dates: start: 200907, end: 200908
  17. FOLSAURE [Concomitant]
     Indication: PROPHYLAXIS OF NEURAL TUBE DEFECT
     Route: 065

REACTIONS (4)
  - Oligohydramnios [Recovered/Resolved]
  - Exposure during pregnancy [Recovered/Resolved]
  - Psoriatic arthropathy [Unknown]
  - Constipation [Unknown]
